FAERS Safety Report 6603209-1 (Version None)
Quarter: 2010Q1

REPORT INFORMATION
  Report Type: 
  Country: None (occurrence: None)
  Receive Date: 20100226
  Receipt Date: 20100216
  Transmission Date: 20100710
  Serious: Yes (Death)
  Sender: FDA-Public Use
  Company Number: JP-PFIZER INC-2010017550

PATIENT
  Age: 70 Year
  Sex: Male

DRUGS (4)
  1. ZYVOX [Suspect]
     Indication: OSTEOMYELITIS
     Dosage: 1200 MG/DAY
     Route: 042
     Dates: start: 20090311
  2. ZYVOX [Suspect]
     Indication: ABSCESS
  3. VANCOMYCIN [Concomitant]
     Indication: STAPHYLOCOCCAL INFECTION
     Dosage: UNK
     Dates: start: 20090201
  4. VANCOMYCIN [Concomitant]
     Indication: BACTERIAL INFECTION

REACTIONS (1)
  - MULTI-ORGAN FAILURE [None]
